FAERS Safety Report 14797226 (Version 1)
Quarter: 2018Q2

REPORT INFORMATION
  Report Type: Spontaneous
  Country: FR (occurrence: FR)
  Receive Date: 20180423
  Receipt Date: 20180423
  Transmission Date: 20180711
  Serious: Yes (Other)
  Sender: FDA-Public Use
  Company Number: FR-MERCK KGAA-2046326

PATIENT
  Age: 78 Year
  Sex: Female

DRUGS (1)
  1. NOVOTHYROX [Suspect]
     Active Substance: LEVOTHYROXINE SODIUM
     Indication: PRODUCT USED FOR UNKNOWN INDICATION

REACTIONS (13)
  - Blood thyroid stimulating hormone increased [None]
  - Onychoclasis [None]
  - Nausea [None]
  - Aggression [None]
  - Tremor [Recovered/Resolved]
  - Alopecia [Recovered/Resolved]
  - Dizziness [None]
  - Memory impairment [Recovered/Resolved]
  - Fatigue [None]
  - Balance disorder [Recovered/Resolved]
  - Loss of personal independence in daily activities [None]
  - Insomnia [Recovered/Resolved]
  - Fall [None]

NARRATIVE: CASE EVENT DATE: 20180108
